FAERS Safety Report 6219804-8 (Version None)
Quarter: 2009Q2

REPORT INFORMATION
  Report Type: 
  Country: None (occurrence: None)
  Receive Date: 20090609
  Receipt Date: 20090605
  Transmission Date: 20091009
  Serious: Yes (Hospitalization)
  Sender: FDA-Public Use
  Company Number: JP-BAYER-200910913BYL

PATIENT
  Age: 69 Year
  Sex: Male
  Weight: 55 kg

DRUGS (16)
  1. NEXAVAR [Suspect]
     Indication: RENAL CELL CARCINOMA STAGE IV
     Dosage: TOTAL DAILY DOSE: 800 MG  UNIT DOSE: 200 MG
     Route: 048
     Dates: start: 20090223, end: 20090323
  2. NEXAVAR [Suspect]
     Dosage: TOTAL DAILY DOSE: 400 MG  UNIT DOSE: 200 MG
     Route: 048
     Dates: start: 20090324, end: 20090324
  3. NEXAVAR [Suspect]
     Dosage: TOTAL DAILY DOSE: 200 MG  UNIT DOSE: 200 MG
     Route: 048
     Dates: start: 20090604
  4. NEXAVAR [Suspect]
     Dosage: TOTAL DAILY DOSE: 400 MG  UNIT DOSE: 200 MG
     Route: 048
     Dates: start: 20090507, end: 20090603
  5. CIMETIDINE [Suspect]
     Indication: DRUG USE FOR UNKNOWN INDICATION
     Route: 065
  6. MOBIC [Concomitant]
     Route: 048
     Dates: start: 20090223, end: 20090323
  7. MICARDIS [Concomitant]
     Route: 048
     Dates: start: 20090223
  8. OXINORM [Concomitant]
     Route: 048
     Dates: start: 20090305, end: 20090309
  9. KALIMATE [Concomitant]
     Route: 048
     Dates: start: 20090319
  10. KALIMATE [Concomitant]
     Route: 048
     Dates: start: 20090311, end: 20090316
  11. KALIMATE [Concomitant]
     Route: 048
     Dates: start: 20090305, end: 20090310
  12. OXYCONTIN [Concomitant]
     Route: 048
     Dates: start: 20090317
  13. OXYCONTIN [Concomitant]
     Route: 048
     Dates: start: 20090310, end: 20090316
  14. TAGAMET [Concomitant]
     Route: 048
     Dates: start: 20090311, end: 20090323
  15. MAGMITT [Concomitant]
     Route: 048
     Dates: start: 20090311
  16. HANGE-KOBOKU-TO [Concomitant]
     Route: 048
     Dates: start: 20090327, end: 20090331

REACTIONS (3)
  - HEPATIC FUNCTION ABNORMAL [None]
  - HYPERKALAEMIA [None]
  - PALMAR-PLANTAR ERYTHRODYSAESTHESIA SYNDROME [None]
